FAERS Safety Report 13738519 (Version 1)
Quarter: 2017Q3

REPORT INFORMATION
  Report Type: Report from Study
  Country: US (occurrence: US)
  Receive Date: 20170710
  Receipt Date: 20170710
  Transmission Date: 20171127
  Serious: Yes (Other)
  Sender: FDA-Public Use
  Company Number: US-SAOL THERAPEUTICS-2016SAO00045

PATIENT
  Age: 72 Year
  Sex: Male

DRUGS (9)
  1. CLONIDINE. [Suspect]
     Active Substance: CLONIDINE
     Dosage: 83.33 ?G, \DAY
     Dates: start: 20160425
  2. CLONIDINE. [Suspect]
     Active Substance: CLONIDINE
     Dosage: 101.6 ?G, \DAY
     Dates: start: 20160425
  3. MORPHINE [Suspect]
     Active Substance: MORPHINE
     Dosage: 3.048 MG, \DAY
     Dates: start: 20160425
  4. BUPIVACAINE. [Suspect]
     Active Substance: BUPIVACAINE
     Dosage: 12.499 MG, \DAY
     Dates: start: 20160425
  5. ORAL HYDROMORPHONE [Concomitant]
     Dosage: UNK
  6. COMPOUNDED BACLOFEN [Suspect]
     Active Substance: BACLOFEN
     Indication: PAIN
     Dosage: 333.31 ?G, \DAY
     Route: 037
     Dates: start: 20160425
  7. COMPOUNDED BACLOFEN [Suspect]
     Active Substance: BACLOFEN
     Dosage: 406.4 ?G/ML, \DAY
     Dates: start: 20160425
  8. MORPHINE [Suspect]
     Active Substance: MORPHINE
     Dosage: 2.4998 MG, \DAY
     Route: 037
     Dates: start: 20160425
  9. BUPIVACAINE. [Suspect]
     Active Substance: BUPIVACAINE
     Dosage: 15.24 MG, \DAY
     Dates: start: 20160425

REACTIONS (3)
  - Overdose [Recovered/Resolved]
  - Unresponsive to stimuli [Recovered/Resolved]
  - Off label use [Unknown]

NARRATIVE: CASE EVENT DATE: 20160506
